FAERS Safety Report 18222020 (Version 1)
Quarter: 2020Q3

REPORT INFORMATION
  Report Type: Spontaneous
  Country: CN (occurrence: CN)
  Receive Date: 20200902
  Receipt Date: 20200902
  Transmission Date: 20201103
  Serious: Yes (Hospitalization)
  Sender: FDA-Public Use
  Company Number: CN-LUPIN PHARMACEUTICALS INC.-2020-05354

PATIENT
  Age: 73 Day
  Sex: Male

DRUGS (6)
  1. VINCRISTINE [Suspect]
     Active Substance: VINCRISTINE
     Indication: INTRAVASCULAR PAPILLARY ENDOTHELIAL HYPERPLASIA
     Dosage: 0.05 MILLIGRAM/KILOGRAM WEEKLY
     Route: 065
  2. METHYLPREDNISOLONE. [Suspect]
     Active Substance: METHYLPREDNISOLONE
     Indication: JAUNDICE CHOLESTATIC
  3. VINCRISTINE [Suspect]
     Active Substance: VINCRISTINE
     Indication: HAEMANGIOMA-THROMBOCYTOPENIA SYNDROME
  4. METHYLPREDNISOLONE. [Suspect]
     Active Substance: METHYLPREDNISOLONE
     Indication: HAEMANGIOMA-THROMBOCYTOPENIA SYNDROME
     Dosage: GRADUALLY TAPERED OVER 4 WEEKS
     Route: 065
  5. VINCRISTINE [Suspect]
     Active Substance: VINCRISTINE
     Indication: JAUNDICE CHOLESTATIC
  6. METHYLPREDNISOLONE. [Suspect]
     Active Substance: METHYLPREDNISOLONE
     Indication: INTRAVASCULAR PAPILLARY ENDOTHELIAL HYPERPLASIA
     Dosage: 4 MILLIGRAM/KILOGRAM, QD
     Route: 065

REACTIONS (1)
  - Treatment failure [Unknown]
